FAERS Safety Report 22289242 (Version 1)
Quarter: 2023Q2

REPORT INFORMATION
  Report Type: Spontaneous
  Country: RU (occurrence: RU)
  Receive Date: 20230505
  Receipt Date: 20230505
  Transmission Date: 20230721
  Serious: Yes (Life-Threatening)
  Sender: FDA-Public Use
  Company Number: RU-BAYER-2023A059166

PATIENT
  Age: 42 Year
  Sex: Female
  Weight: 90 kg

DRUGS (1)
  1. DIENOGEST\ESTRADIOL VALERATE [Suspect]
     Active Substance: DIENOGEST\ESTRADIOL VALERATE
     Indication: Endometriosis
     Dosage: 1 DF, QD
     Route: 048
     Dates: start: 202203, end: 20230425

REACTIONS (6)
  - Ischaemic stroke [None]
  - Dizziness [None]
  - Coordination abnormal [None]
  - Nausea [None]
  - Vomiting [None]
  - Off label use [None]

NARRATIVE: CASE EVENT DATE: 20230424
